FAERS Safety Report 21706654 (Version 2)
Quarter: 2023Q1

REPORT INFORMATION
  Report Type: Spontaneous
  Country: US (occurrence: US)
  Receive Date: 20221209
  Receipt Date: 20230209
  Transmission Date: 20230418
  Serious: No
  Sender: FDA-Public Use
  Company Number: US-SA-SAC20221208000767

PATIENT
  Sex: Male

DRUGS (3)
  1. DUPIXENT [Suspect]
     Active Substance: DUPILUMAB
     Indication: Dermatitis atopic
     Dosage: 600 MG, 1X
     Route: 058
     Dates: start: 202211, end: 202211
  2. DUPIXENT [Suspect]
     Active Substance: DUPILUMAB
     Dosage: 300 MG, QOW
     Route: 058
  3. DUPIXENT [Suspect]
     Active Substance: DUPILUMAB
     Dosage: 200 MG, FREQUENCY: OTHER
     Route: 058

REACTIONS (7)
  - Heart rate increased [Unknown]
  - Hyperarousal [Unknown]
  - Keratosis pilaris [Unknown]
  - Dermatitis atopic [Unknown]
  - Dry skin [Unknown]
  - Erythema [Unknown]
  - Drug ineffective [Unknown]
